FAERS Safety Report 25492285 (Version 1)
Quarter: 2025Q2

REPORT INFORMATION
  Report Type: Spontaneous
  Country: US (occurrence: US)
  Receive Date: 20250630
  Receipt Date: 20250630
  Transmission Date: 20250717
  Serious: No
  Sender: TOLMAR
  Company Number: US-Tolmar-TLM-2025-02758

PATIENT
  Age: 5 Year

DRUGS (2)
  1. FENSOLVI [Suspect]
     Active Substance: LEUPROLIDE ACETATE
     Indication: Precocious puberty
  2. DEVICE [Suspect]
     Active Substance: DEVICE
     Indication: Precocious puberty
     Route: 050

REACTIONS (1)
  - Injection site mass [Unknown]
